FAERS Safety Report 21842275 (Version 1)
Quarter: 2023Q1

REPORT INFORMATION
  Report Type: Spontaneous
  Country: CA (occurrence: CA)
  Receive Date: 20230110
  Receipt Date: 20230110
  Transmission Date: 20230417
  Serious: Yes (Hospitalization, Other)
  Sender: FDA-Public Use
  Company Number: CA-SAMSUNG BIOEPIS-SB-2023-00239

PATIENT
  Age: 39 Year
  Sex: Male

DRUGS (1)
  1. INFLIXIMAB [Suspect]
     Active Substance: INFLIXIMAB
     Indication: Crohn^s disease
     Route: 042

REACTIONS (13)
  - Abdominal abscess [Recovered/Resolved]
  - Abdominal pain upper [Recovered/Resolved]
  - Condition aggravated [Recovered/Resolved]
  - Gastrointestinal infection [Recovered/Resolved]
  - Infection [Recovered/Resolved]
  - Purulent discharge [Recovered/Resolved]
  - Wound [Recovered/Resolved]
  - Wound haemorrhage [Recovered/Resolved]
  - Drug level below therapeutic [Recovered/Resolved]
  - Drug ineffective [Recovered/Resolved]
  - Product dose omission issue [Recovered/Resolved]
  - Intentional product use issue [Recovered/Resolved]
  - Off label use [Recovered/Resolved]
